FAERS Safety Report 19905235 (Version 4)
Quarter: 2022Q3

REPORT INFORMATION
  Report Type: Report from Study
  Country: US (occurrence: US)
  Receive Date: 20211001
  Receipt Date: 20220825
  Transmission Date: 20221027
  Serious: Yes (Hospitalization, Other)
  Sender: FDA-Public Use
  Company Number: US-TAKEDA-US201904587

PATIENT
  Age: 44 Year
  Sex: Female

DRUGS (6)
  1. LANADELUMAB [Suspect]
     Active Substance: LANADELUMAB
     Indication: Hereditary angioedema
     Dosage: 300 MILLIGRAM
     Route: 058
     Dates: start: 20181116
  2. LANADELUMAB [Suspect]
     Active Substance: LANADELUMAB
     Indication: Nervous system disorder
     Dosage: 300 MILLIGRAM
     Route: 058
     Dates: start: 20181116
  3. LANADELUMAB [Suspect]
     Active Substance: LANADELUMAB
     Dosage: 300 MILLIGRAM
     Route: 058
     Dates: start: 20181207
  4. LANADELUMAB [Suspect]
     Active Substance: LANADELUMAB
     Dosage: 300 MILLIGRAM
     Route: 058
     Dates: start: 20181228
  5. LANADELUMAB [Suspect]
     Active Substance: LANADELUMAB
     Dosage: UNK, Q2WEEKS
     Route: 058
     Dates: start: 2019
  6. LANADELUMAB [Suspect]
     Active Substance: LANADELUMAB
     Dosage: 300 MILLIGRAM, Q2WEEKS
     Route: 058
     Dates: start: 20190111

REACTIONS (3)
  - Device related bacteraemia [Recovered/Resolved]
  - Hereditary angioedema [Recovering/Resolving]
  - Poor venous access [Recovered/Resolved]

NARRATIVE: CASE EVENT DATE: 20190208
